FAERS Safety Report 6766948-8 (Version None)
Quarter: 2010Q2

REPORT INFORMATION
  Report Type: 
  Country: None (occurrence: None)
  Receive Date: 20100611
  Receipt Date: 20100603
  Transmission Date: 20101027
  Serious: Yes (Other)
  Sender: FDA-Public Use
  Company Number: GB-ABBOTT-10P-167-0647352-00

PATIENT
  Sex: Male
  Weight: 88.2 kg

DRUGS (2)
  1. HUMIRA [Suspect]
     Indication: PSORIASIS
     Route: 058
     Dates: start: 20081030
  2. HUMIRA [Suspect]

REACTIONS (2)
  - DIARRHOEA [None]
  - WHITE BLOOD CELL COUNT DECREASED [None]
